FAERS Safety Report 8536593-2 (Version None)
Quarter: 2012Q3

REPORT INFORMATION
  Report Type: 
  Country: None (occurrence: None)
  Receive Date: 20120718
  Receipt Date: 20120718
  Transmission Date: 20120928
  Serious: Yes (Life-Threatening, Hospitalization)
  Sender: FDA-Public Use
  Company Number: None

PATIENT
  Age: 46 Year
  Sex: Female
  Weight: 49.8957 kg

DRUGS (1)
  1. MEFLOQUINE HYDROCHLORIDE [Suspect]
     Indication: MALARIA PROPHYLAXIS
     Dosage: 250 MG WEEKLY PO
     Route: 048
     Dates: start: 20120502, end: 20120530

REACTIONS (11)
  - CHEST PAIN [None]
  - ANXIETY [None]
  - SUICIDAL IDEATION [None]
  - INSOMNIA [None]
  - DECREASED APPETITE [None]
  - HALLUCINATION, VISUAL [None]
  - CONVULSION [None]
  - DELUSION [None]
  - DEPRESSION [None]
  - OVERDOSE [None]
  - HYPERTENSION [None]
